FAERS Safety Report 21372229 (Version 1)
Quarter: 2022Q3

REPORT INFORMATION
  Report Type: Spontaneous
  Country: US (occurrence: US)
  Receive Date: 20220924
  Receipt Date: 20220924
  Transmission Date: 20221026
  Serious: Yes (Other)
  Sender: FDA-Public Use
  Company Number: None

PATIENT

DRUGS (1)
  1. DEXTROAMPHET SACCHARAT, AMPHET ASPARTATE, DEXTROAMPHET SULFATE AND AMP [Suspect]
     Active Substance: AMPHETAMINE ASPARTATE\AMPHETAMINE SULFATE\DEXTROAMPHETAMINE SACCHARATE\DEXTROAMPHETAMINE SULFATE
     Indication: Product used for unknown indication
     Route: 065

REACTIONS (16)
  - Mental impairment [Unknown]
  - Panic attack [Unknown]
  - Muscular weakness [Unknown]
  - Confusional state [Unknown]
  - Dizziness [Unknown]
  - Feeling drunk [Unknown]
  - Eyelid irritation [Unknown]
  - Feeling abnormal [Unknown]
  - Fear [Unknown]
  - Tremor [Unknown]
  - Anger [Unknown]
  - Nausea [Unknown]
  - Hyperhidrosis [Unknown]
  - Dyspnoea [Unknown]
  - Vision blurred [Unknown]
  - Product substitution issue [Unknown]
